FAERS Safety Report 11298124 (Version 1)
Quarter: 2015Q3

REPORT INFORMATION
  Report Type: Spontaneous
  Country: US (occurrence: US)
  Receive Date: 20150722
  Receipt Date: 20150722
  Transmission Date: 20151125
  Serious: Yes (Hospitalization)
  Sender: FDA-Public Use
  Company Number: US-ELI_LILLY_AND_COMPANY-US201106003346

PATIENT
  Sex: Male

DRUGS (5)
  1. EFFIENT [Suspect]
     Active Substance: PRASUGREL HYDROCHLORIDE
     Dosage: 10 MG, UNKNOWN
     Route: 065
     Dates: end: 20110605
  2. ACE INHIBITORS [Concomitant]
     Active Substance: UNSPECIFIED INGREDIENT
     Dosage: UNK, UNKNOWN
     Route: 065
  3. ANGIOTENSIN II ANTAGONISTS [Concomitant]
     Active Substance: UNSPECIFIED INGREDIENT
     Dosage: UNK, UNKNOWN
     Route: 065
  4. EFFIENT [Suspect]
     Active Substance: PRASUGREL HYDROCHLORIDE
     Indication: ACUTE MYOCARDIAL INFARCTION
     Dosage: 60 MG, UNKNOWN
     Route: 065
     Dates: start: 20110515
  5. ASPIRIN. [Concomitant]
     Active Substance: ASPIRIN
     Dosage: 325 MG, QD
     Route: 065

REACTIONS (1)
  - Gastrointestinal haemorrhage [Unknown]

NARRATIVE: CASE EVENT DATE: 20110605
